FAERS Safety Report 9631902 (Version 1)
Quarter: 2013Q4

REPORT INFORMATION
  Report Type: Spontaneous
  Country: JP (occurrence: JP)
  Receive Date: 20131018
  Receipt Date: 20131018
  Transmission Date: 20140711
  Serious: Yes (Other)
  Sender: FDA-Public Use
  Company Number: JP-ASTRAZENECA-2013SE75414

PATIENT
  Sex: 0

DRUGS (1)
  1. DIPRIVAN KIT [Suspect]
     Dosage: DOSE UNKNOWN
     Route: 042

REACTIONS (1)
  - Glossoptosis [Unknown]
